FAERS Safety Report 7479703-0 (Version None)
Quarter: 2011Q2

REPORT INFORMATION
  Report Type: 
  Country: None (occurrence: None)
  Receive Date: 20110513
  Receipt Date: 20110504
  Transmission Date: 20111010
  Serious: Yes (Other)
  Sender: FDA-Public Use
  Company Number: US-ASTRAZENECA-2011SE27199

PATIENT
  Sex: Male

DRUGS (2)
  1. NEXIUM [Suspect]
     Dosage: EVERY DAY
     Route: 048
  2. NEXIUM [Suspect]
     Dosage: EVERY OTHER DAY
     Route: 048

REACTIONS (3)
  - ULCER [None]
  - FALL [None]
  - SPINAL FRACTURE [None]
